FAERS Safety Report 17661356 (Version 1)
Quarter: 2020Q2

REPORT INFORMATION
  Report Type: Spontaneous
  Country: US (occurrence: US)
  Receive Date: 20200413
  Receipt Date: 20200413
  Transmission Date: 20200713
  Serious: No
  Sender: FDA-Public Use
  Company Number: None

PATIENT
  Age: 30 Year
  Sex: Female
  Weight: 76.5 kg

DRUGS (1)
  1. COLGATE TOTAL SF ADVANCED WHITENING [Suspect]
     Active Substance: STANNOUS FLUORIDE
     Dosage: ?          QUANTITY:1 PEA SIZE;?
     Route: 048
     Dates: start: 20200405, end: 20200412

REACTIONS (2)
  - Lip swelling [None]
  - Gingival pain [None]

NARRATIVE: CASE EVENT DATE: 20200405
